FAERS Safety Report 24250419 (Version 2)
Quarter: 2024Q3

REPORT INFORMATION
  Report Type: Spontaneous
  Country: DE (occurrence: DE)
  Receive Date: 20240826
  Receipt Date: 20240902
  Transmission Date: 20241017
  Serious: Yes (Life-Threatening, Hospitalization)
  Sender: NOVARTIS
  Company Number: DE-PEI-202400018428

PATIENT
  Age: 28 Year
  Sex: Female
  Weight: 45 kg

DRUGS (1)
  1. KESIMPTA [Suspect]
     Active Substance: OFATUMUMAB
     Indication: Relapsing-remitting multiple sclerosis
     Dosage: 20 MG, QMO, DURATION OF ADMINISTRATION 6 MONTHS
     Route: 065

REACTIONS (10)
  - Multiple sclerosis relapse [Not Recovered/Not Resolved]
  - Anti-thyroid antibody increased [Not Recovered/Not Resolved]
  - Disturbance in attention [Not Recovered/Not Resolved]
  - Blood brain barrier defect [Not Recovered/Not Resolved]
  - Quadriplegia [Not Recovered/Not Resolved]
  - Pleocytosis [Not Recovered/Not Resolved]
  - Pyrexia [Not Recovered/Not Resolved]
  - Meningitis viral [Not Recovered/Not Resolved]
  - Atypical pneumonia [Not Recovered/Not Resolved]
  - Diarrhoea [Not Recovered/Not Resolved]
